FAERS Safety Report 7591264-4 (Version None)
Quarter: 2011Q3

REPORT INFORMATION
  Report Type: 
  Country: None (occurrence: None)
  Receive Date: 20110706
  Receipt Date: 20110627
  Transmission Date: 20111222
  Serious: Yes (Hospitalization)
  Sender: FDA-Public Use
  Company Number: US-BIOGENIDEC-2011BI019897

PATIENT
  Sex: Male

DRUGS (2)
  1. TYSABRI [Suspect]
     Indication: MULTIPLE SCLEROSIS
     Route: 042
     Dates: start: 20101228, end: 20110506
  2. AVONEX [Concomitant]
     Indication: MULTIPLE SCLEROSIS
     Route: 030
     Dates: start: 19990601

REACTIONS (5)
  - INFECTION [None]
  - VEIN DISORDER [None]
  - URINARY TRACT INFECTION [None]
  - DRUG INEFFECTIVE [None]
  - POST PROCEDURAL INFECTION [None]
